FAERS Safety Report 14587582 (Version 1)
Quarter: 2018Q1

REPORT INFORMATION
  Report Type: Spontaneous
  Country: US (occurrence: US)
  Receive Date: 20180301
  Receipt Date: 20180301
  Transmission Date: 20180509
  Serious: Yes (Hospitalization, Other)
  Sender: FDA-Public Use
  Company Number: US-CELLTRION INC.-2017US017417

PATIENT

DRUGS (24)
  1. ASCORBIC ACID. [Concomitant]
     Active Substance: ASCORBIC ACID
     Dosage: 500 MG
     Route: 048
  2. ZINC. [Concomitant]
     Active Substance: ZINC
     Dosage: UNK, BID
  3. CEFTRIAXONE. [Concomitant]
     Active Substance: CEFTRIAXONE
     Dosage: 2 G/50 ML INTRAVENOUS SOLUTION 2 G = 50 ML, IVPB, Q24H
     Route: 042
  4. BIOTIN [Concomitant]
     Active Substance: BIOTIN
     Dosage: UNK
  5. METOPROLOL TARTRATE. [Concomitant]
     Active Substance: METOPROLOL TARTRATE
     Dosage: UNK
  6. TUMS ULTRA [Concomitant]
     Active Substance: CALCIUM CARBONATE
     Dosage: 1000 MG ORAL TABLET, CHEWABLE 1,000 MG=1 TAB, PO, DAILY
     Route: 048
  7. ASPIRIN                            /00002701/ [Concomitant]
     Active Substance: ASPIRIN
     Dosage: 81 MG, ORAL TABLET 81 MG = 1 TAB
     Route: 048
  8. PROBIOTIC 30 BILLION [Concomitant]
     Dosage: UNK, DAILY
     Route: 048
  9. ZOFRAN [Concomitant]
     Active Substance: ONDANSETRON HYDROCHLORIDE
     Dosage: ODT 4 MG, PRN, PO, TID
     Route: 048
  10. LEFLUNOMIDE. [Concomitant]
     Active Substance: LEFLUNOMIDE
     Dosage: UNK
  11. VITAMIN C [Concomitant]
     Active Substance: ASCORBIC ACID
     Dosage: 1000 MG ORAL TABLET 1,000 MG=1 TAB, PO, DAILY
     Route: 048
  12. ZINC SULFATE [Concomitant]
     Active Substance: ZINC SULFATE\ZINC SULFATE ANHYDROUS
     Dosage: 220 MG ORAL TABLET 220 MG= 1 TAB
     Route: 048
  13. INFLECTRA [Suspect]
     Active Substance: INFLIXIMAB-DYYB
     Indication: RHEUMATOID ARTHRITIS
     Dosage: 200 MG
     Route: 042
     Dates: start: 20171027, end: 20171027
  14. CALCIUM CARBONATE. [Concomitant]
     Active Substance: CALCIUM CARBONATE
     Dosage: 1,000 MG, PO, DAILY,  ONGOING
     Route: 048
  15. FERROUS SULFATE. [Concomitant]
     Active Substance: FERROUS SULFATE
     Dosage: 325 MG (65 MG ELEMENTAL IRON)= 1 TAB, PO, BID
     Route: 048
  16. VITAMIN D                          /00107901/ [Concomitant]
     Active Substance: ERGOCALCIFEROL
     Dosage: 1,000 UNIT, PO, DAILY, TABLET, ONGOING
  17. ARAVA [Concomitant]
     Active Substance: LEFLUNOMIDE
     Dosage: 20 MG,1  TABLET, DAILY
  18. PREDNISONE. [Concomitant]
     Active Substance: PREDNISONE
     Dosage: TABLET, 1 MG ORAL TABLET 2.5, PO, Q PM
     Route: 048
  19. BACTROBAN [Concomitant]
     Active Substance: MUPIROCIN\MUPIROCIN CALCIUM
     Dosage: 2% TOPICAL OINTMENT 1 APPLY, TOPICAL, TID , OINTMENT
     Route: 061
  20. MAGNESIUM [Concomitant]
     Active Substance: MAGNESIUM
     Dosage: 1,000 MG, PO, DAILY
     Route: 048
  21. VITAMIN D3 [Concomitant]
     Active Substance: CHOLECALCIFEROL
     Dosage: 1000 UNIT ORAL TABLET 1,000 UNIT= 1 TAB
     Route: 048
  22. PREDNISONE. [Concomitant]
     Active Substance: PREDNISONE
     Dosage: 5 MG ORAL TABLET 5 MG = 1 TAB, PO, Q AM
     Route: 048
  23. GLUCOSAMINE CHONDROITIN            /01430901/ [Concomitant]
     Dosage: COMPLEX 500 MG
  24. CICLOPIROX. [Concomitant]
     Active Substance: CICLOPIROX
     Dosage: UNK

REACTIONS (5)
  - Arthritis bacterial [Recovered/Resolved]
  - Gallbladder disorder [Recovered/Resolved]
  - Mental status changes [Recovered/Resolved]
  - Pancreatitis acute [Recovered/Resolved]
  - Transaminases increased [Recovered/Resolved]

NARRATIVE: CASE EVENT DATE: 20171116
